FAERS Safety Report 23451209 (Version 1)
Quarter: 2024Q1

REPORT INFORMATION
  Report Type: Spontaneous
  Country: AU (occurrence: AU)
  Receive Date: 20240129
  Receipt Date: 20240129
  Transmission Date: 20240410
  Serious: Yes (Hospitalization, Other)
  Sender: FDA-Public Use
  Company Number: AU-EPICPHARMA-AU-2024EPCLIT00189

PATIENT
  Age: 48 Year
  Sex: Male

DRUGS (3)
  1. LIDOCAINE HYDROCHLORIDE [Suspect]
     Active Substance: LIDOCAINE HYDROCHLORIDE
     Indication: Analgesic therapy
     Dosage: GREATER THAN 300 G (10.56 %)
     Route: 061
  2. DROPERIDOL [Concomitant]
     Active Substance: DROPERIDOL
     Route: 030
  3. DIAZEPAM [Concomitant]
     Active Substance: DIAZEPAM
     Indication: Hypertonia
     Route: 065

REACTIONS (5)
  - Neurotoxicity [Recovering/Resolving]
  - Local anaesthetic systemic toxicity [Recovering/Resolving]
  - Electrocardiogram QRS complex abnormal [Recovering/Resolving]
  - Overdose [Unknown]
  - Intentional product misuse [Unknown]
